FAERS Safety Report 19681201 (Version 3)
Quarter: 2021Q4

REPORT INFORMATION
  Report Type: Spontaneous
  Country: FR (occurrence: FR)
  Receive Date: 20210810
  Receipt Date: 20211011
  Transmission Date: 20220303
  Serious: Yes (Hospitalization)
  Sender: FDA-Public Use
  Company Number: FR-BIOGEN-2021BI01036763

PATIENT
  Sex: Female

DRUGS (1)
  1. TYSABRI [Suspect]
     Active Substance: NATALIZUMAB
     Indication: Relapsing-remitting multiple sclerosis
     Route: 065
     Dates: start: 201710

REACTIONS (2)
  - Papilloma viral infection [Unknown]
  - Cervical dysplasia [Unknown]
